FAERS Safety Report 10102404 (Version 1)
Quarter: 2014Q2

REPORT INFORMATION
  Report Type: Spontaneous
  Country: US (occurrence: US)
  Receive Date: 20140424
  Receipt Date: 20140424
  Transmission Date: 20141212
  Serious: Yes (Hospitalization, Other)
  Sender: FDA-Public Use
  Company Number: PHHY2014US046777

PATIENT
  Age: 49 Year
  Sex: Male

DRUGS (2)
  1. METFORMIN [Suspect]
     Indication: DIABETES MELLITUS
  2. HALOPERIDOL [Concomitant]
     Indication: SCHIZOPHRENIA

REACTIONS (6)
  - Toxicity to various agents [Unknown]
  - Haemodynamic instability [Unknown]
  - Body temperature decreased [Unknown]
  - Anuria [Unknown]
  - Acid base balance abnormal [Unknown]
  - Overdose [Unknown]
